FAERS Safety Report 12700851 (Version 7)
Quarter: 2016Q4

REPORT INFORMATION
  Report Type: Spontaneous
  Country: US (occurrence: US)
  Receive Date: 20160830
  Receipt Date: 20161109
  Transmission Date: 20170207
  Serious: No
  Sender: FDA-Public Use
  Company Number: US-BEH-2016073030

PATIENT
  Age: 17 Year
  Sex: Male

DRUGS (9)
  1. IDELVION [Suspect]
     Active Substance: COAGULATION FACTOR IX RECOMBINANT HUMAN
     Dosage: UNK
     Route: 065
  2. IDELVION [Suspect]
     Active Substance: COAGULATION FACTOR IX RECOMBINANT HUMAN
     Dosage: 75 IU/KG, TOT
     Route: 042
     Dates: start: 20160816, end: 20160816
  3. IDELVION [Suspect]
     Active Substance: COAGULATION FACTOR IX RECOMBINANT HUMAN
     Dosage: 75 IU/KG, TOT
     Route: 042
     Dates: start: 20160809, end: 20160809
  4. IDELVION [Suspect]
     Active Substance: COAGULATION FACTOR IX RECOMBINANT HUMAN
     Dosage: UNK
     Route: 065
  5. IDELVION [Suspect]
     Active Substance: COAGULATION FACTOR IX RECOMBINANT HUMAN
     Indication: FACTOR IX DEFICIENCY
     Dosage: 75 IU/KG, TOT
     Route: 042
     Dates: start: 20160719, end: 20160719
  6. IDELVION [Suspect]
     Active Substance: COAGULATION FACTOR IX RECOMBINANT HUMAN
     Dosage: 75 IU/KG, TOT
     Route: 042
     Dates: start: 20160823, end: 20160823
  7. IDELVION [Suspect]
     Active Substance: COAGULATION FACTOR IX RECOMBINANT HUMAN
     Dosage: 75 IU/KG, TOT
     Route: 042
     Dates: start: 20160909, end: 20160909
  8. IDELVION [Suspect]
     Active Substance: COAGULATION FACTOR IX RECOMBINANT HUMAN
     Dosage: 40 IU/KG, UNK
     Route: 065
     Dates: start: 20160914
  9. IDELVION [Suspect]
     Active Substance: COAGULATION FACTOR IX RECOMBINANT HUMAN
     Dosage: 46 UNK, UNK
     Route: 065
     Dates: start: 20160920

REACTIONS (5)
  - Device difficult to use [Unknown]
  - Palpitations [Recovered/Resolved]
  - Palpitations [Unknown]
  - Palpitations [Unknown]
  - Product colour issue [Unknown]

NARRATIVE: CASE EVENT DATE: 20150920
